FAERS Safety Report 10144075 (Version 1)
Quarter: 2014Q2

REPORT INFORMATION
  Report Type: Spontaneous
  Country: EC (occurrence: EC)
  Receive Date: 20140430
  Receipt Date: 20140430
  Transmission Date: 20141212
  Serious: Yes (Other)
  Sender: FDA-Public Use
  Company Number: EC-PFIZER INC-2014116310

PATIENT
  Age: 84 Year
  Sex: Female

DRUGS (2)
  1. LIPITOR [Suspect]
     Indication: ANEURYSM
     Dosage: 10 MG, 1X/DAY
     Route: 048
     Dates: start: 2013
  2. NORVASC [Suspect]
     Dosage: 5 MG, 1X/DAY
     Route: 048

REACTIONS (1)
  - Deep vein thrombosis [Recovered/Resolved]
